FAERS Safety Report 12262284 (Version 1)
Quarter: 2016Q2

REPORT INFORMATION
  Report Type: Spontaneous
  Country: US (occurrence: None)
  Receive Date: 20160412
  Receipt Date: 20160412
  Transmission Date: 20160815
  Serious: Yes (Hospitalization)
  Sender: FDA-Public Use
  Company Number: None

PATIENT
  Age: 63 Year
  Sex: Male
  Weight: 62.3 kg

DRUGS (2)
  1. VALPROIC ACID. [Suspect]
     Active Substance: VALPROIC ACID
     Dosage: 1000 MG AM PO
     Route: 048
     Dates: start: 20151014, end: 20160322
  2. METHADONE [Suspect]
     Active Substance: METHADONE HYDROCHLORIDE
     Route: 048
     Dates: start: 20141206

REACTIONS (8)
  - Overdose [None]
  - Somnolence [None]
  - Mental status changes [None]
  - Confusional state [None]
  - Dizziness [None]
  - Sedation [None]
  - Toxicity to various agents [None]
  - Bradycardia [None]

NARRATIVE: CASE EVENT DATE: 20160318
